FAERS Safety Report 7398081-9 (Version None)
Quarter: 2011Q2

REPORT INFORMATION
  Report Type: 
  Country: None (occurrence: None)
  Receive Date: 20110406
  Receipt Date: 20110325
  Transmission Date: 20111010
  Serious: Yes (Other)
  Sender: FDA-Public Use
  Company Number: ES-ELI_LILLY_AND_COMPANY-ES201103007402

PATIENT
  Age: 76 Year
  Sex: Female

DRUGS (2)
  1. ALIMTA [Suspect]
     Indication: LUNG NEOPLASM MALIGNANT
     Dosage: UNK
     Route: 065
     Dates: start: 20110318, end: 20110318
  2. XUMADOL [Concomitant]
     Indication: PAIN
     Dosage: UNK, PRN
     Route: 048
     Dates: start: 20110324, end: 20110324

REACTIONS (2)
  - PYREXIA [None]
  - PAIN [None]
